FAERS Safety Report 19712111 (Version 1)
Quarter: 2021Q3

REPORT INFORMATION
  Report Type: Spontaneous
  Country: PT (occurrence: PT)
  Receive Date: 20210816
  Receipt Date: 20210816
  Transmission Date: 20211014
  Serious: Yes (Hospitalization, Other)
  Sender: FDA-Public Use
  Company Number: PT-ANIPHARMA-2021-PT-000033

PATIENT
  Age: 89 Year
  Sex: Female

DRUGS (1)
  1. MEMANTINE HYDROCHLORIDE EXTENDED?RELEASE CAPSULES (NON?SPECIFIC) [Suspect]
     Active Substance: MEMANTINE HYDROCHLORIDE
     Indication: DEMENTIA

REACTIONS (1)
  - Myoclonus [Recovered/Resolved]
